FAERS Safety Report 10069028 (Version 1)
Quarter: 2014Q2

REPORT INFORMATION
  Report Type: Spontaneous
  Country: IT (occurrence: IT)
  Receive Date: 20140409
  Receipt Date: 20140409
  Transmission Date: 20141212
  Serious: Yes (Hospitalization)
  Sender: FDA-Public Use
  Company Number: IT-WATSON-2014-06839

PATIENT
  Age: 67 Year
  Sex: Male

DRUGS (1)
  1. LORAZEPAM (UNKNOWN) [Suspect]
     Indication: ANXIETY DISORDER
     Dosage: 6 MG, DAILY
     Route: 048
     Dates: start: 20131029, end: 20131030

REACTIONS (2)
  - Loss of consciousness [Recovering/Resolving]
  - Sopor [Recovering/Resolving]
